FAERS Safety Report 24068781 (Version 2)
Quarter: 2024Q3

REPORT INFORMATION
  Report Type: Report from Study
  Country: US (occurrence: US)
  Receive Date: 20240710
  Receipt Date: 20240710
  Transmission Date: 20241017
  Serious: No
  Sender: ROCHE
  Company Number: US-ROCHE-3242566

PATIENT
  Age: 87 Year
  Sex: Female

DRUGS (2)
  1. VABYSMO [Suspect]
     Active Substance: FARICIMAB\FARICIMAB-SVOA
     Indication: Neovascular age-related macular degeneration
     Dosage: ANTICIPATED DATE OF TREATMENT: 28/MAR/2022, 07JUN/2023, 25/SEP/2023, DATE OF SERVICE: 13/APR/2023
     Route: 065
  2. VABYSMO [Suspect]
     Active Substance: FARICIMAB\FARICIMAB-SVOA
     Indication: Choroidal neovascularisation
     Dosage: DATE OF SERVICE: 17/OCT/2022, 14/NOV/2022, 12/DEC/2022, 16/JAN/2023, 18/DEC/2023
     Route: 065

REACTIONS (2)
  - Off label use [Unknown]
  - No adverse event [Unknown]
